FAERS Safety Report 17346582 (Version 4)
Quarter: 2020Q3

REPORT INFORMATION
  Report Type: Spontaneous
  Country: DE (occurrence: DE)
  Receive Date: 20200130
  Receipt Date: 20200812
  Transmission Date: 20201102
  Serious: Yes (Death, Life-Threatening, Hospitalization, Other)
  Sender: FDA-Public Use
  Company Number: NVSC2020DE022441

PATIENT
  Weight: 82 kg

DRUGS (2)
  1. KYMRIAH [Suspect]
     Active Substance: TISAGENLECLEUCEL
     Indication: DIFFUSE LARGE B-CELL LYMPHOMA RECURRENT
     Dosage: UNK
     Route: 065
     Dates: start: 201904
  2. KYMRIAH [Suspect]
     Active Substance: TISAGENLECLEUCEL
     Indication: DIFFUSE LARGE B-CELL LYMPHOMA REFRACTORY

REACTIONS (16)
  - Enterococcal infection [Fatal]
  - Hypotension [Recovering/Resolving]
  - Infection [Fatal]
  - Cognitive disorder [Recovered/Resolved]
  - Delirium [Recovered/Resolved]
  - Hypoxia [Recovering/Resolving]
  - Haemophagocytic lymphohistiocytosis [Unknown]
  - Cytokine release syndrome [Recovering/Resolving]
  - Lymphangitis [Recovered/Resolved]
  - Immune effector cell-associated neurotoxicity syndrome [Recovered/Resolved]
  - Atrial fibrillation [Unknown]
  - Tachycardia [Recovering/Resolving]
  - Pyrexia [Recovering/Resolving]
  - Septic shock [Fatal]
  - Multiple organ dysfunction syndrome [Recovering/Resolving]
  - Interleukin level increased [Recovering/Resolving]

NARRATIVE: CASE EVENT DATE: 201907
